FAERS Safety Report 5070534-8 (Version None)
Quarter: 2006Q3

REPORT INFORMATION
  Report Type: 
  Country: None (occurrence: None)
  Receive Date: 20060714
  Receipt Date: 20060419
  Transmission Date: 20061208
  Serious: No
  Sender: FDA-Public Use
  Company Number: 2006SP001761

PATIENT
  Age: 85 Year
  Sex: Female

DRUGS (9)
  1. LUNESTA [Suspect]
     Indication: INSOMNIA
     Dosage: 1 MG;HS;ORAL
     Route: 048
     Dates: start: 20060301
  2. ATORVASTATIN CALCIUM [Concomitant]
  3. OXYBUTYNIN [Concomitant]
  4. SYNTHROID [Concomitant]
  5. CARDIZEM CD [Concomitant]
  6. NEXIUM [Concomitant]
  7. MAXZIDE [Concomitant]
  8. POTASSIUM [Concomitant]
  9. EYE DROPS [Concomitant]

REACTIONS (1)
  - DYSGEUSIA [None]
